FAERS Safety Report 11421842 (Version 15)
Quarter: 2024Q3

REPORT INFORMATION
  Report Type: Report from Study
  Country: CA (occurrence: CA)
  Receive Date: 20150827
  Receipt Date: 20240808
  Transmission Date: 20241017
  Serious: Yes (Hospitalization, Disabling, Other)
  Sender: ROCHE
  Company Number: CA-ROCHE-1318626

PATIENT
  Age: 40 Year
  Sex: Female
  Weight: 130.0 kg

DRUGS (27)
  1. ACTEMRA [Suspect]
     Active Substance: TOCILIZUMAB
     Indication: Rheumatoid arthritis
     Route: 042
     Dates: start: 20131113, end: 20140623
  2. ACTEMRA [Suspect]
     Active Substance: TOCILIZUMAB
     Route: 042
     Dates: start: 20140203, end: 20140623
  3. ACTEMRA [Suspect]
     Active Substance: TOCILIZUMAB
     Route: 042
  4. ACTEMRA [Suspect]
     Active Substance: TOCILIZUMAB
     Indication: Rheumatoid arthritis
     Dosage: START DATE 25-JUN-2015
     Route: 058
     Dates: end: 2015
  5. ACTEMRA [Suspect]
     Active Substance: TOCILIZUMAB
     Route: 058
     Dates: start: 2015, end: 2020
  6. ACTEMRA [Suspect]
     Active Substance: TOCILIZUMAB
     Route: 058
     Dates: start: 2020, end: 202007
  7. ACTEMRA [Suspect]
     Active Substance: TOCILIZUMAB
     Dosage: ONGOING: YES
     Route: 058
     Dates: start: 2020, end: 2023
  8. ACTEMRA [Suspect]
     Active Substance: TOCILIZUMAB
     Route: 058
     Dates: start: 2023, end: 2023
  9. ACTEMRA [Suspect]
     Active Substance: TOCILIZUMAB
     Route: 058
     Dates: start: 2023
  10. OZEMPIC [Suspect]
     Active Substance: SEMAGLUTIDE
     Indication: Product used for unknown indication
     Dosage: (WAS 1MG, GOING BACK TO.5MG
     Route: 065
  11. ENBREL [Concomitant]
     Active Substance: BENZYL ALCOHOL\ETANERCEPT
  12. HUMIRA [Concomitant]
     Active Substance: ADALIMUMAB
  13. IBUPROFEN [Concomitant]
     Active Substance: IBUPROFEN
  14. TRAMADOL [Concomitant]
     Active Substance: TRAMADOL\TRAMADOL HYDROCHLORIDE
  15. LEFLUNOMIDE [Concomitant]
     Active Substance: LEFLUNOMIDE
  16. PRISTIQ EXTENDED-RELEASE [Concomitant]
     Active Substance: DESVENLAFAXINE SUCCINATE
     Indication: Depression
  17. METHOTREXATE [Concomitant]
     Active Substance: METHOTREXATE
  18. DICLOFENAC [Concomitant]
     Active Substance: DICLOFENAC
     Dosage: FREQUENCY TEXT:PRN
     Route: 061
  19. DICLOFENAC [Concomitant]
     Active Substance: DICLOFENAC
  20. ORENCIA [Concomitant]
     Active Substance: ABATACEPT
  21. CETIRIZINE HYDROCHLORIDE [Concomitant]
     Active Substance: CETIRIZINE HYDROCHLORIDE
  22. PREDNISONE [Concomitant]
     Active Substance: PREDNISONE
  23. ENBREL [Concomitant]
     Active Substance: BENZYL ALCOHOL\ETANERCEPT
  24. HUMIRA [Concomitant]
     Active Substance: ADALIMUMAB
  25. ORENCIA [Concomitant]
     Active Substance: ABATACEPT
  26. DRIXORAL (CANADA) [Concomitant]
  27. OZEMPIC [Concomitant]
     Active Substance: SEMAGLUTIDE

REACTIONS (43)
  - Weight increased [Unknown]
  - Abscess [Unknown]
  - Bacteraemia [Unknown]
  - Intestinal perforation [Not Recovered/Not Resolved]
  - Varicella [Not Recovered/Not Resolved]
  - Infection [Unknown]
  - Diverticulitis [Unknown]
  - Immunodeficiency [Unknown]
  - Sepsis [Unknown]
  - Arthralgia [Unknown]
  - Swelling [Recovering/Resolving]
  - Neuralgia [Unknown]
  - Gait disturbance [Not Recovered/Not Resolved]
  - Dysstasia [Not Recovered/Not Resolved]
  - Arthropathy [Not Recovered/Not Resolved]
  - Ankle fracture [Unknown]
  - Insulin-requiring type 2 diabetes mellitus [Unknown]
  - Diabetes mellitus [Unknown]
  - Headache [Recovering/Resolving]
  - Blood pressure increased [Unknown]
  - Wound [Recovering/Resolving]
  - Pyrexia [Unknown]
  - Pain [Unknown]
  - C-reactive protein decreased [Recovering/Resolving]
  - Pruritus [Recovered/Resolved]
  - Skin irritation [Recovered/Resolved]
  - Skin infection [Recovered/Resolved]
  - Eczema [Recovering/Resolving]
  - Drug ineffective [Unknown]
  - Inflammation [Unknown]
  - Diarrhoea [Unknown]
  - White blood cell count decreased [Recovering/Resolving]
  - Peripheral swelling [Not Recovered/Not Resolved]
  - Skin wrinkling [Not Recovered/Not Resolved]
  - Fall [Unknown]
  - Musculoskeletal stiffness [Unknown]
  - Infection [Unknown]
  - Sinusitis [Unknown]
  - Rheumatoid arthritis [Unknown]
  - Suspected COVID-19 [Unknown]
  - Influenza [Unknown]
  - Viral infection [Unknown]
  - Tendon rupture [Unknown]

NARRATIVE: CASE EVENT DATE: 20131113
